FAERS Safety Report 8487561-0 (Version None)
Quarter: 2012Q3

REPORT INFORMATION
  Report Type: 
  Country: None (occurrence: None)
  Receive Date: 20120705
  Receipt Date: 20120621
  Transmission Date: 20120928
  Serious: Yes (Hospitalization, Other)
  Sender: FDA-Public Use
  Company Number: US-JNJFOC-20120611885

PATIENT
  Sex: Male
  Weight: 95.26 kg

DRUGS (9)
  1. REMICADE [Suspect]
     Route: 042
     Dates: start: 20120101
  2. HUMIRA [Concomitant]
     Indication: CROHN'S DISEASE
     Route: 065
     Dates: end: 20110101
  3. ALL OTHER THERAPEUTIC PRODUCTS [Concomitant]
     Indication: GASTROOESOPHAGEAL REFLUX DISEASE
     Route: 065
  4. REMICADE [Suspect]
     Indication: CROHN'S DISEASE
     Route: 042
     Dates: start: 20120604, end: 20120604
  5. AZATHIOPRINE [Concomitant]
     Indication: PREMEDICATION
     Route: 065
  6. BENADRYL [Concomitant]
     Indication: PREMEDICATION
     Dosage: 50 TO 100 MG
     Route: 065
  7. STEROIDS NOS [Concomitant]
     Indication: PREMEDICATION
     Route: 042
  8. PREDNISONE [Concomitant]
     Indication: PREMEDICATION
     Route: 065
  9. REMICADE [Suspect]
     Route: 042
     Dates: start: 20111001

REACTIONS (6)
  - FLUSHING [None]
  - ILEECTOMY [None]
  - INTESTINAL OBSTRUCTION [None]
  - WHITE BLOOD CELL COUNT DECREASED [None]
  - INFUSION RELATED REACTION [None]
  - OBSTRUCTIVE AIRWAYS DISORDER [None]
